FAERS Safety Report 17648119 (Version 6)
Quarter: 2020Q4

REPORT INFORMATION
  Report Type: Report from Study
  Country: None (occurrence: FR)
  Receive Date: 20200408
  Receipt Date: 20201204
  Transmission Date: 20210113
  Serious: Yes (Hospitalization)
  Sender: FDA-Public Use
  Company Number: FR-ABBVIE-20P-056-3334488-00

PATIENT
  Age: 11 Year
  Sex: Male
  Weight: 19 kg

DRUGS (18)
  1. VENETOCLAX. [Suspect]
     Active Substance: VENETOCLAX
     Route: 050
     Dates: start: 20200113, end: 20200321
  2. VENETOCLAX. [Suspect]
     Active Substance: VENETOCLAX
     Dosage: GASTROSTOMY
     Route: 050
     Dates: start: 20200101, end: 20200112
  3. ONDANSETRON [Concomitant]
     Active Substance: ONDANSETRON
     Indication: PROPHYLAXIS OF NAUSEA AND VOMITING
     Route: 042
     Dates: start: 20191230
  4. VENETOCLAX. [Suspect]
     Active Substance: VENETOCLAX
     Route: 050
     Dates: start: 20200324
  5. AZACITIDINE. [Suspect]
     Active Substance: AZACITIDINE
     Indication: REFRACTORY CANCER
     Dosage: FOR 7 DAYS OF EACH CYCLE
     Route: 042
     Dates: start: 20200102, end: 20200316
  6. AZACITIDINE. [Suspect]
     Active Substance: AZACITIDINE
     Indication: RECURRENT CANCER
  7. MICAFUNGINE [Concomitant]
     Active Substance: MICAFUNGIN
     Indication: NEUTROPENIA
     Route: 042
     Dates: start: 20200127
  8. ONDANSETRON [Concomitant]
     Active Substance: ONDANSETRON
     Indication: NAUSEA
     Route: 048
     Dates: start: 20200224
  9. PANTOPRAZOLE [Concomitant]
     Active Substance: PANTOPRAZOLE
     Indication: PROPHYLAXIS
     Route: 048
     Dates: start: 20200227
  10. VENETOCLAX. [Suspect]
     Active Substance: VENETOCLAX
     Indication: REFRACTORY CANCER
     Dosage: GASTROSTOMY
     Route: 050
     Dates: start: 20191230, end: 20191230
  11. BACTRIM [Concomitant]
     Active Substance: SULFAMETHOXAZOLE\TRIMETHOPRIM
     Indication: INFECTION PROPHYLAXIS
  12. SODIUM BICARBONATE. [Concomitant]
     Active Substance: SODIUM BICARBONATE
     Indication: PROPHYLAXIS
     Route: 061
     Dates: start: 20191230
  13. ZINC. [Concomitant]
     Active Substance: ZINC
     Indication: PROPHYLAXIS
     Route: 061
     Dates: start: 20191230
  14. BACTRIM [Concomitant]
     Active Substance: SULFAMETHOXAZOLE\TRIMETHOPRIM
     Indication: CHEMOTHERAPY
     Route: 042
     Dates: start: 20191230
  15. VENETOCLAX. [Suspect]
     Active Substance: VENETOCLAX
     Indication: RECURRENT CANCER
     Dosage: GASTROSTOMY
     Route: 050
     Dates: start: 20191231, end: 20191231
  16. RASBURICASE [Concomitant]
     Active Substance: RASBURICASE
     Indication: PROPHYLAXIS
     Route: 065
     Dates: start: 20191230, end: 20191230
  17. CHLORHEXIDIN [Concomitant]
     Active Substance: CHLORHEXIDINE
     Indication: DENTAL DISORDER PROPHYLAXIS
     Route: 061
     Dates: start: 20191230
  18. DEXTROSE IN WATER [Concomitant]
     Active Substance: DEXTROSE\WATER
     Indication: PROPHYLAXIS
     Route: 042
     Dates: start: 20191230, end: 20200109

REACTIONS (2)
  - Febrile neutropenia [Recovered/Resolved]
  - Diarrhoea [Recovered/Resolved]

NARRATIVE: CASE EVENT DATE: 20200321
